FAERS Safety Report 20989247 (Version 2)
Quarter: 2022Q2

REPORT INFORMATION
  Report Type: Spontaneous
  Country: AR (occurrence: AR)
  Receive Date: 20220621
  Receipt Date: 20220629
  Transmission Date: 20220720
  Serious: Yes (Other)
  Sender: FDA-Public Use
  Company Number: AR-BIOMARINAP-AR-2022-143841

PATIENT

DRUGS (3)
  1. KUVAN [Suspect]
     Active Substance: SAPROPTERIN DIHYDROCHLORIDE
     Indication: Phenylketonuria
     Dosage: 400 MILLIGRAM, QD
     Route: 048
     Dates: start: 2017
  2. KUVAN [Suspect]
     Active Substance: SAPROPTERIN DIHYDROCHLORIDE
     Dosage: 500 MILLIGRAM, QD
     Route: 048
     Dates: start: 2022
  3. Karidium [Concomitant]
     Indication: Seizure
     Dosage: UNK
     Dates: end: 20220614

REACTIONS (6)
  - Partial seizures [Recovered/Resolved]
  - Seizure [Recovered/Resolved]
  - Eye movement disorder [Recovered/Resolved]
  - Cyanosis [Recovered/Resolved]
  - Musculoskeletal disorder [Recovered/Resolved]
  - Amino acid level increased [Recovering/Resolving]

NARRATIVE: CASE EVENT DATE: 20200101
